FAERS Safety Report 9204997 (Version 1)
Quarter: 2013Q1

REPORT INFORMATION
  Report Type: Spontaneous
  Country: US (occurrence: None)
  Receive Date: 20120709
  Receipt Date: 20120709
  Transmission Date: 20140127
  Serious: No
  Sender: FDA-Public Use
  Company Number: 2012HGS003400

PATIENT
  Age: 56 Year
  Sex: Female

DRUGS (15)
  1. BENLYSTA [Suspect]
     Indication: SYSTEMIC LUPUS ERYTHEMATOSUS
     Dosage: 1 IN 28D INTRAVENOUSE DRIP
     Dates: start: 20120306
  2. PREDNISONE (PREDNISONE) (PREDNISONE) [Concomitant]
  3. PLAQUENIL (HYDROXY-CHLOROQUINE SULFATE) (HYDROXY-CHLOROQUINE SULFATE) [Concomitant]
  4. METHOTREXATE (METHOTREXATE) (METHOTREXATE) [Concomitant]
  5. FOLIC ACID (FOLIC ACID) (FOLIC ACID) [Concomitant]
  6. EFFEXOR (VENLAFAXINE HYDROCHLORIDE) (VENLAFAXINE HYDROCHLORIDE) [Concomitant]
  7. FLEXERIL (CYCLOBENZAPRINE HYDROCHLORIDE) (CYCLOBENZAPRINE HYDROCHLORIDE) [Concomitant]
  8. TRAMADOL (TRAMADOL) (TRAMADOL) [Concomitant]
  9. NORVASC (AMLODIPINE BESILATE) (AMLODIPINE BESILATE) [Concomitant]
  10. HYDROCHLOROTHIAZIDE (HYDROCHLOROTHIAZIDE) (HYDROCHLOROTHIAZIDE) [Concomitant]
  11. MULTIVITAMIN (VIGRAN) (ERGOCALCIFEROL, ASCORBIC ACID, PYRIDOXINE HYDROCHLORIDE, THIAMINE HYDROCHLORIDE, RETINOL, RIBOFLAVIN, NICOTINAMIDE, CALCIUM, PANTOTHENATE) [Concomitant]
  12. CALCIUM (CALCIUM CARBONATE) (CALCIUM CARBONATE) [Concomitant]
  13. VITAMIN D (ERGOCALCIFEROL) (ERGOCALCIFEROL) [Concomitant]
  14. OMEGA 3 (FISH OIL) (FISH OIL) [Concomitant]
  15. REQUIP (ROPINIROLE HYDROCHLORIDE) (ROPINIROLE HYDROCHLORIDE) [Concomitant]

REACTIONS (1)
  - Diarrhoea [None]
